FAERS Safety Report 9760047 (Version 2)
Quarter: 2014Q1

REPORT INFORMATION
  Report Type: Spontaneous
  Country: DE (occurrence: DE)
  Receive Date: 20131216
  Receipt Date: 20140110
  Transmission Date: 20141002
  Serious: Yes (Hospitalization, Other)
  Sender: FDA-Public Use
  Company Number: DE-JNJFOC-20131206267

PATIENT
  Age: 16 Year
  Sex: Male
  Weight: 64.5 kg

DRUGS (5)
  1. REMICADE [Suspect]
     Indication: COLITIS ULCERATIVE
     Dosage: FIFTH INFUSION
     Route: 042
     Dates: start: 20130923, end: 20130923
  2. REMICADE [Suspect]
     Indication: COLITIS ULCERATIVE
     Route: 042
     Dates: start: 20130411
  3. FENISTIL [Concomitant]
     Indication: PREMEDICATION
     Route: 042
     Dates: start: 20130923
  4. PREDNISOLONE [Concomitant]
     Indication: PREMEDICATION
     Route: 042
     Dates: start: 20130923
  5. RAMIPRIL [Concomitant]
     Indication: CARDIAC DISORDER
     Route: 065
     Dates: start: 201303

REACTIONS (4)
  - Infusion related reaction [Recovered/Resolved]
  - Polyserositis [Recovering/Resolving]
  - Anaphylactic reaction [Recovered/Resolved]
  - Drug specific antibody present [Recovering/Resolving]
